FAERS Safety Report 6417818 (Version 4)
Quarter: 2013Q4

REPORT INFORMATION
  Report Type: Spontaneous
  Country: US (occurrence: US)
  Receive Date: 20070918
  Receipt Date: 20131114
  Transmission Date: 20140711
  Serious: Yes (Other)
  Sender: FDA-Public Use
  Company Number: US-ASTRAZENECA-2006UW28340

PATIENT
  Age: 717 Month
  Sex: Female
  Weight: 48.1 kg

DRUGS (19)
  1. SEROQUEL [Suspect]
     Indication: BIPOLAR DISORDER
     Route: 048
     Dates: start: 200609
  2. SEROQUEL [Suspect]
     Indication: ANXIETY
     Route: 048
     Dates: start: 200609
  3. SEROQUEL [Suspect]
     Indication: ANGER
     Route: 048
     Dates: start: 200609
  4. SEROQUEL [Suspect]
     Indication: MOOD SWINGS
     Route: 048
     Dates: start: 200609
  5. SEROQUEL [Suspect]
     Indication: BIPOLAR DISORDER
     Route: 048
  6. SEROQUEL [Suspect]
     Indication: ANXIETY
     Route: 048
  7. SEROQUEL [Suspect]
     Indication: ANGER
     Route: 048
  8. SEROQUEL [Suspect]
     Indication: MOOD SWINGS
     Route: 048
  9. SEROQUEL [Suspect]
     Indication: BIPOLAR DISORDER
     Route: 048
  10. SEROQUEL [Suspect]
     Indication: ANXIETY
     Route: 048
  11. SEROQUEL [Suspect]
     Indication: ANGER
     Route: 048
  12. SEROQUEL [Suspect]
     Indication: MOOD SWINGS
     Route: 048
  13. SEROQUEL [Suspect]
     Indication: BIPOLAR DISORDER
     Route: 048
  14. SEROQUEL [Suspect]
     Indication: ANXIETY
     Route: 048
  15. SEROQUEL [Suspect]
     Indication: ANGER
     Route: 048
  16. SEROQUEL [Suspect]
     Indication: MOOD SWINGS
     Route: 048
  17. PRILOSEC [Suspect]
     Indication: GASTROINTESTINAL DISORDER
     Dosage: GENERIC OVER THE COUNTER PRILOSEC
     Route: 048
     Dates: start: 2003
  18. ACIPHEX [Concomitant]
     Indication: GASTRIC DISORDER
     Route: 048
  19. BENTYL DICYCLOMINE [Concomitant]
     Indication: GASTRIC DISORDER
     Route: 048

REACTIONS (16)
  - Rash [Not Recovered/Not Resolved]
  - Drug hypersensitivity [Unknown]
  - Dyspnoea [Unknown]
  - Pruritus [Recovered/Resolved]
  - Malaise [Unknown]
  - Therapeutic response increased [Unknown]
  - Gastrointestinal disorder [Not Recovered/Not Resolved]
  - Feeling hot [Not Recovered/Not Resolved]
  - Gastric disorder [Not Recovered/Not Resolved]
  - Sleep disorder due to general medical condition, insomnia type [Not Recovered/Not Resolved]
  - Thirst [Not Recovered/Not Resolved]
  - Pollakiuria [Not Recovered/Not Resolved]
  - Dizziness [Not Recovered/Not Resolved]
  - Constipation [Unknown]
  - Intentional drug misuse [Not Recovered/Not Resolved]
  - Drug dose omission [Not Recovered/Not Resolved]
